FAERS Safety Report 9051772 (Version 5)
Quarter: 2013Q3

REPORT INFORMATION
  Report Type: Spontaneous
  Country: US (occurrence: US)
  Receive Date: 20130207
  Receipt Date: 20130802
  Transmission Date: 20140515
  Serious: No
  Sender: FDA-Public Use
  Company Number: US-BIOGENIDEC-2013BI007371

PATIENT
  Age: 68 Year
  Sex: Male

DRUGS (3)
  1. AVONEX [Suspect]
     Indication: MULTIPLE SCLEROSIS
     Route: 030
     Dates: start: 2012
  2. TYLENOL [Concomitant]
     Indication: PREMEDICATION
  3. FLU SHOT [Concomitant]
     Indication: ANTIVIRAL PROPHYLAXIS

REACTIONS (19)
  - Contusion [Unknown]
  - Strabismus [Not Recovered/Not Resolved]
  - Cataract [Not Recovered/Not Resolved]
  - Loss of consciousness [Recovered/Resolved]
  - Cystitis [Recovered/Resolved]
  - Amnesia [Recovered/Resolved]
  - Influenza [Not Recovered/Not Resolved]
  - Cognitive disorder [Unknown]
  - Hypoaesthesia [Not Recovered/Not Resolved]
  - Fall [Recovered/Resolved]
  - Sleep disorder [Not Recovered/Not Resolved]
  - Balance disorder [Not Recovered/Not Resolved]
  - Injection site bruising [Unknown]
  - Road traffic accident [Recovered/Resolved]
  - Injection site haemorrhage [Recovered/Resolved]
  - Paraesthesia [Unknown]
  - Pain in extremity [Unknown]
  - Dizziness [Recovered/Resolved]
  - Feeling abnormal [Unknown]
